FAERS Safety Report 18601432 (Version 1)
Quarter: 2020Q4

REPORT INFORMATION
  Report Type: Spontaneous
  Country: US (occurrence: US)
  Receive Date: 20201210
  Receipt Date: 20201210
  Transmission Date: 20210114
  Serious: No
  Sender: FDA-Public Use
  Company Number: US-MSNLABS-2020MSNSPO00411

PATIENT

DRUGS (2)
  1. PREGABALIN. [Concomitant]
     Active Substance: PREGABALIN
     Indication: PAIN
     Route: 065
  2. PREGABALIN CAPSULES 50MG [Suspect]
     Active Substance: PREGABALIN
     Indication: PAIN
     Route: 065

REACTIONS (3)
  - Product substitution issue [Unknown]
  - Abdominal pain upper [Unknown]
  - Adverse event [Unknown]
